FAERS Safety Report 10465009 (Version 3)
Quarter: 2015Q4

REPORT INFORMATION
  Report Type: Report from Study
  Country: FR (occurrence: FR)
  Receive Date: 20140919
  Receipt Date: 20151218
  Transmission Date: 20160304
  Serious: Yes (Hospitalization, Other)
  Sender: FDA-Public Use
  Company Number: FR-GLAXOSMITHKLINE-B1034505A

PATIENT
  Age: 57 Year
  Sex: Male
  Weight: 102 kg

DRUGS (3)
  1. DABRAFENIB [Suspect]
     Active Substance: DABRAFENIB
     Indication: MALIGNANT MELANOMA
     Dosage: 04 SEP 2014 - UNKNOWN10 SEP 2014 - CONTINUING
     Route: 048
     Dates: start: 20140904
  2. TRAMETINIB [Suspect]
     Active Substance: TRAMETINIB
     Indication: MALIGNANT MELANOMA
     Dosage: 04 SEP 2014 - UNKNOWN10 SEP 2014  - CONTINUING
     Route: 048
     Dates: start: 20140904
  3. MEDI4736 [Suspect]
     Active Substance: DURVALUMAB
     Indication: MALIGNANT MELANOMA
     Dosage: 04 SEP 2014 - UNKNOWN10 SEP 2014 - CONTINUING
     Route: 042
     Dates: start: 20140904

REACTIONS (1)
  - Electrocardiogram repolarisation abnormality [Recovered/Resolved]

NARRATIVE: CASE EVENT DATE: 20140904
